FAERS Safety Report 23887289 (Version 3)
Quarter: 2024Q4

REPORT INFORMATION
  Report Type: Spontaneous
  Country: US (occurrence: US)
  Receive Date: 20240523
  Receipt Date: 20241224
  Transmission Date: 20250114
  Serious: No
  Sender: SANOFI AVENTIS
  Company Number: US-SA-SAC20240517000298

PATIENT
  Sex: Female

DRUGS (5)
  1. DUPIXENT [Suspect]
     Active Substance: DUPILUMAB
     Indication: Neurodermatitis
     Dosage: 300 MG, QOW
     Route: 058
  2. DUPIXENT [Suspect]
     Active Substance: DUPILUMAB
     Dosage: 200 MG, QW
     Route: 058
  3. HYDROCHLOROTHIAZIDE [Concomitant]
     Active Substance: HYDROCHLOROTHIAZIDE
     Dosage: UNK
  4. LOSARTAN [Concomitant]
     Active Substance: LOSARTAN
     Dosage: UNK
  5. HYDROCHLOROTHIAZIDE\SPIRONOLACTONE [Concomitant]
     Active Substance: HYDROCHLOROTHIAZIDE\SPIRONOLACTONE
     Dosage: UNK

REACTIONS (10)
  - Tremor [Unknown]
  - Pain in extremity [Recovering/Resolving]
  - Condition aggravated [Recovering/Resolving]
  - Skin fissures [Not Recovered/Not Resolved]
  - Condition aggravated [Not Recovered/Not Resolved]
  - Rash [Unknown]
  - Dry skin [Recovering/Resolving]
  - Product dose omission in error [Unknown]
  - Off label use [Unknown]
  - Inappropriate schedule of product administration [Unknown]
